FAERS Safety Report 18881711 (Version 1)
Quarter: 2021Q1

REPORT INFORMATION
  Report Type: Spontaneous
  Country: SA (occurrence: SA)
  Receive Date: 20210212
  Receipt Date: 20210212
  Transmission Date: 20210420
  Serious: No
  Sender: FDA-Public Use
  Company Number: SA-LUPIN PHARMACEUTICALS INC.-2021-01534

PATIENT
  Age: 6 Year
  Sex: Male

DRUGS (4)
  1. ADDERALL [Concomitant]
     Active Substance: AMPHETAMINE ASPARTATE\AMPHETAMINE SULFATE\DEXTROAMPHETAMINE SACCHARATE\DEXTROAMPHETAMINE SULFATE
     Dosage: 5 MILLIGRAM (THE PARENTS REPORTED GIVING THE MEDICATION AT 10 AM ) CONTROLLED RELEASE
     Route: 065
  2. METHYLPHENIDATE. [Suspect]
     Active Substance: METHYLPHENIDATE
     Indication: ATTENTION DEFICIT HYPERACTIVITY DISORDER
     Dosage: 18 MILLIGRAM, LONG?ACTING FORM (OSMOTIC?CONTROLLED RELEASE ORAL DELIVERY SYSTEM METHYLPHENIDATE, 18
     Route: 048
  3. METHYLPHENIDATE. [Suspect]
     Active Substance: METHYLPHENIDATE
     Dosage: 2.5 MILLIGRAM (SHORT?ACTING FORMS (IMMEDIATE?RELEASE METHYLPHENIDATE, 2.5 MG)
     Route: 065
  4. ADDERALL [Concomitant]
     Active Substance: AMPHETAMINE ASPARTATE\AMPHETAMINE SULFATE\DEXTROAMPHETAMINE SACCHARATE\DEXTROAMPHETAMINE SULFATE
     Indication: ATTENTION DEFICIT HYPERACTIVITY DISORDER
     Dosage: 5 MILLIGRAM CONTROLLED RELEASE
     Route: 065

REACTIONS (4)
  - Drug intolerance [Unknown]
  - Irritability [Unknown]
  - Insomnia [Unknown]
  - Decreased appetite [Unknown]
